FAERS Safety Report 13147603 (Version 2)
Quarter: 2017Q1

REPORT INFORMATION
  Report Type: Spontaneous
  Country: US (occurrence: US)
  Receive Date: 20170125
  Receipt Date: 20170203
  Transmission Date: 20170428
  Serious: Yes (Other)
  Sender: FDA-Public Use
  Company Number: US-ROCHE-1882237

PATIENT
  Age: 39 Year
  Sex: Male

DRUGS (22)
  1. LORAZEPAM. [Concomitant]
     Active Substance: LORAZEPAM
     Dosage: 15 TABLETS
     Route: 048
  2. SUCRALFATE. [Concomitant]
     Active Substance: SUCRALFATE
     Dosage: 60 TABLETS
     Route: 048
  3. HERCEPTIN [Suspect]
     Active Substance: TRASTUZUMAB
     Indication: NEOPLASM MALIGNANT
     Route: 065
  4. CARBOPLATIN. [Concomitant]
     Active Substance: CARBOPLATIN
  5. FULVESTRANT [Concomitant]
     Active Substance: FULVESTRANT
     Dosage: THEN MONTHLY
     Route: 030
  6. PROCHLORPERAZINE. [Concomitant]
     Active Substance: PROCHLORPERAZINE
     Dosage: 30 TABLETS
     Route: 048
  7. SENNA [Concomitant]
     Active Substance: SENNA LEAF\SENNOSIDES\SENNOSIDES A AND B
     Dosage: 120 TABLETS
     Route: 048
  8. ACETAMINOPHEN. [Concomitant]
     Active Substance: ACETAMINOPHEN
     Dosage: 100 TABLETS
     Route: 048
  9. ABRAXANE [Concomitant]
     Active Substance: PACLITAXEL
  10. MORPHINE [Concomitant]
     Active Substance: MORPHINE
     Dosage: 60 TABLETS
     Route: 048
  11. SULFAMETHOXAZOLE/TRIMETHOPRIM [Suspect]
     Active Substance: SULFAMETHOXAZOLE\TRIMETHOPRIM
     Route: 042
  12. LETROZOLE. [Concomitant]
     Active Substance: LETROZOLE
  13. TAXOTERE [Concomitant]
     Active Substance: DOCETAXEL
     Route: 065
  14. OMEPRAZOLE. [Concomitant]
     Active Substance: OMEPRAZOLE
     Dosage: 30 CAPSULES
     Route: 048
  15. LACTULOSE. [Concomitant]
     Active Substance: LACTULOSE
     Route: 065
  16. KADCYLA [Suspect]
     Active Substance: ADO-TRASTUZUMAB EMTANSINE
     Indication: BREAST CANCER FEMALE
     Dosage: DISCONTINUED AFTER 2 CYCLES
     Route: 042
     Dates: start: 20160418
  17. PERJETA [Suspect]
     Active Substance: PERTUZUMAB
     Indication: BREAST CANCER
     Dosage: FOR 3 WEEK CYCLE DISCONTINUED AFTER 2 CYCLES ;ONGOING: NO
     Route: 042
     Dates: start: 20160214
  18. SULFAMETHOXAZOLE/TRIMETHOPRIM [Suspect]
     Active Substance: SULFAMETHOXAZOLE\TRIMETHOPRIM
     Indication: PRODUCT USED FOR UNKNOWN INDICATION
     Dosage: 2 TABS
     Route: 048
  19. DIFLUCAN [Suspect]
     Active Substance: FLUCONAZOLE
     Indication: PRODUCT USED FOR UNKNOWN INDICATION
     Route: 065
  20. PERJETA [Suspect]
     Active Substance: PERTUZUMAB
     Indication: NEOPLASM MALIGNANT
  21. CYTOXAN [Concomitant]
     Active Substance: CYCLOPHOSPHAMIDE
  22. IBRANCE [Concomitant]
     Active Substance: PALBOCICLIB

REACTIONS (19)
  - Anaemia [Unknown]
  - Infectious pleural effusion [Unknown]
  - Weight decreased [Unknown]
  - Oral pain [Recovered/Resolved]
  - Drug dose omission [Unknown]
  - Abdominal pain [Unknown]
  - Oesophagitis [Unknown]
  - Dyspnoea [Unknown]
  - Constipation [Unknown]
  - Skin mass [Recovered/Resolved]
  - Excessive granulation tissue [Unknown]
  - Chest pain [Unknown]
  - Candida infection [Recovered/Resolved]
  - Tumour marker increased [Not Recovered/Not Resolved]
  - Decreased appetite [Not Recovered/Not Resolved]
  - Oropharyngeal pain [Recovered/Resolved]
  - Back pain [Unknown]
  - Wound [Unknown]
  - Fatigue [Unknown]

NARRATIVE: CASE EVENT DATE: 20160805
